FAERS Safety Report 7955805 (Version 3)
Quarter: 2013Q1

REPORT INFORMATION
  Report Type: Spontaneous
  Country: AU (occurrence: AU)
  Receive Date: 20110523
  Receipt Date: 20130206
  Transmission Date: 20140127
  Serious: Yes (Death)
  Sender: FDA-Public Use
  Company Number: PHHY2011AU43158

PATIENT
  Sex: Male

DRUGS (1)
  1. GLIVEC [Suspect]
     Indication: CHRONIC MYELOID LEUKAEMIA
     Dosage: 400 MG, UNK
     Route: 048

REACTIONS (2)
  - Bladder cancer [Fatal]
  - Second primary malignancy [Fatal]
